FAERS Safety Report 21518542 (Version 2)
Quarter: 2023Q1

REPORT INFORMATION
  Report Type: Report from Study
  Country: GB (occurrence: GB)
  Receive Date: 20221028
  Receipt Date: 20230103
  Transmission Date: 20230417
  Serious: Yes (Hospitalization, Other)
  Sender: FDA-Public Use
  Company Number: GB-NOVARTISPH-NVSC2022GB238459

PATIENT
  Sex: Male

DRUGS (1)
  1. ERELZI [Suspect]
     Active Substance: ETANERCEPT-SZZS
     Indication: Product used for unknown indication
     Dosage: 25 MG, BIW (TWICE WEEK)
     Route: 058

REACTIONS (5)
  - Fall [Recovered/Resolved]
  - Road traffic accident [Recovered/Resolved]
  - Diaphragmatic injury [Recovered/Resolved]
  - Gastrointestinal injury [Recovered/Resolved]
  - Infection [Recovered/Resolved]
